FAERS Safety Report 8613326-2 (Version None)
Quarter: 2012Q3

REPORT INFORMATION
  Report Type: 
  Country: None (occurrence: None)
  Receive Date: 20120822
  Receipt Date: 20120806
  Transmission Date: 20120928
  Serious: Yes (Disabling, Other)
  Sender: FDA-Public Use
  Company Number: US-009507513-1207USA009796

PATIENT

DRUGS (20)
  1. METHOCARBAMOL [Suspect]
     Route: 048
  2. FUROSEMIDE [Suspect]
     Route: 048
  3. DILANTIN [Suspect]
     Route: 048
  4. POTASSIUM CHLORIDE [Suspect]
  5. DEPAKOTE [Suspect]
     Route: 048
  6. ASPIRIN [Suspect]
  7. LOMOTIL [Suspect]
     Route: 048
  8. HUMULIN R [Suspect]
  9. LANTUS [Suspect]
     Dosage: 80 IU, QAM
  10. NITROSTAT [Suspect]
  11. ATIVAN [Suspect]
     Route: 048
  12. ZANTAC [Suspect]
  13. ATENOLOL [Suspect]
     Route: 048
  14. LANTUS [Suspect]
     Dosage: 90 DF, QPM
  15. ZOCOR [Suspect]
     Route: 048
  16. GENERLAC [Suspect]
  17. NORVASC [Suspect]
     Route: 048
  18. TYLENOL W/ CODEINE NO. 3 [Suspect]
  19. REMERON [Suspect]
     Route: 048
  20. ISOSORBIDE MONONITRATE [Suspect]

REACTIONS (4)
  - BEDRIDDEN [None]
  - AMNESIA [None]
  - CHRONIC OBSTRUCTIVE PULMONARY DISEASE [None]
  - EMPHYSEMA [None]
